FAERS Safety Report 7337100-2 (Version None)
Quarter: 2011Q1

REPORT INFORMATION
  Report Type: 
  Country: None (occurrence: None)
  Receive Date: 20110224
  Receipt Date: 20110207
  Transmission Date: 20110831
  Serious: Yes (Hospitalization, Other)
  Sender: FDA-Public Use
  Company Number: 2011P1004336

PATIENT
  Age: 27 Year
  Sex: Male

DRUGS (1)
  1. PHENYTOIN ORAL SUSPENSION USP 125 MG/5ML (NO PREF. NAME) [Suspect]
     Dosage: 5 MG; BID; PO
     Route: 048

REACTIONS (4)
  - TOXICITY TO VARIOUS AGENTS [None]
  - CONVULSION [None]
  - ANTICONVULSANT DRUG LEVEL ABOVE THERAPEUTIC [None]
  - PRODUCT SUBSTITUTION ISSUE [None]
